FAERS Safety Report 22212104 (Version 1)
Quarter: 2023Q2

REPORT INFORMATION
  Report Type: Spontaneous
  Country: US (occurrence: None)
  Receive Date: 20230413
  Receipt Date: 20230413
  Transmission Date: 20230721
  Serious: Yes (Hospitalization)
  Sender: FDA-Public Use
  Company Number: None

PATIENT
  Age: 55 Year
  Sex: Male
  Weight: 101.8 kg

DRUGS (1)
  1. VENOFER [Suspect]
     Active Substance: IRON SUCROSE
     Indication: Iron deficiency anaemia
     Dosage: OTHER FREQUENCY : ONCE;?
     Route: 040
     Dates: start: 20230220, end: 20230405

REACTIONS (6)
  - Malaise [None]
  - Hyperhidrosis [None]
  - Unresponsive to stimuli [None]
  - Blood pressure decreased [None]
  - Therapy cessation [None]
  - Drug hypersensitivity [None]

NARRATIVE: CASE EVENT DATE: 20230405
